FAERS Safety Report 5951460-6 (Version None)
Quarter: 2008Q4

REPORT INFORMATION
  Report Type: 
  Country: None (occurrence: None)
  Receive Date: 20081113
  Receipt Date: 20081104
  Transmission Date: 20090506
  Serious: Yes (Disabling, Other)
  Sender: FDA-Public Use
  Company Number: CA-JNJFOC-20081101634

PATIENT
  Sex: Male
  Weight: 61 kg

DRUGS (4)
  1. REMICADE [Suspect]
     Route: 042
  2. REMICADE [Suspect]
     Indication: DRUG USE FOR UNKNOWN INDICATION
     Route: 042
  3. UNSPECIFIED MEDICATION [Concomitant]
     Route: 045
  4. NAPROSYN [Concomitant]

REACTIONS (2)
  - FALL [None]
  - WRIST FRACTURE [None]
